FAERS Safety Report 8357899-6 (Version None)
Quarter: 2012Q2

REPORT INFORMATION
  Report Type: 
  Country: None (occurrence: None)
  Receive Date: 20120514
  Receipt Date: 20120508
  Transmission Date: 20120825
  Serious: Yes (Other)
  Sender: FDA-Public Use
  Company Number: US-AMGEN-USASP2012029073

PATIENT
  Age: 62 Year
  Sex: Female
  Weight: 60.91 kg

DRUGS (5)
  1. DOXORUBICIN HCL [Suspect]
     Indication: BREAST CANCER
     Dosage: UNK
     Dates: start: 20100813, end: 20101015
  2. NEULASTA [Suspect]
     Indication: BREAST CANCER
     Dosage: UNK
     Dates: start: 20100813, end: 20101016
  3. PACLITAXEL [Suspect]
     Indication: BREAST CANCER
     Dosage: UNK
     Dates: start: 20100813, end: 20110128
  4. CYCLOPHOSPHAMIDE [Suspect]
     Indication: BREAST CANCER
     Dosage: UNK
     Dates: start: 20100813, end: 20101015
  5. BEVACIZUMAB [Suspect]
     Indication: BREAST CANCER
     Dosage: UNK UNK, PER CHEMO REGIM
     Route: 042
     Dates: start: 20100813, end: 20110609

REACTIONS (1)
  - EJECTION FRACTION DECREASED [None]
